FAERS Safety Report 8421342-9 (Version None)
Quarter: 2012Q2

REPORT INFORMATION
  Report Type: 
  Country: None (occurrence: None)
  Receive Date: 20120601
  Receipt Date: 20120523
  Transmission Date: 20120825
  Serious: No
  Sender: FDA-Public Use
  Company Number: 120217

PATIENT
  Age: 64 Year
  Sex: Female
  Weight: 63.05 kg

DRUGS (2)
  1. SUPREP BOWEL PREP KIT [Suspect]
     Indication: COLONOSCOPY
     Dosage: 1 X 6OZ BOTTLE/ 1X/ PO
     Route: 048
     Dates: start: 20120523
  2. DILAUDID (PUMP), PROMETHAZINE, VASERETIC, STOOL SOFTNERS, ALBUTEROL, F [Concomitant]

REACTIONS (4)
  - VOMITING [None]
  - HAEMATEMESIS [None]
  - HEADACHE [None]
  - FEELING ABNORMAL [None]
